FAERS Safety Report 5359640-8 (Version None)
Quarter: 2007Q2

REPORT INFORMATION
  Report Type: 
  Country: None (occurrence: None)
  Receive Date: 20070530
  Receipt Date: 20070116
  Transmission Date: 20071010
  Serious: Yes (Hospitalization, Other)
  Sender: FDA-Public Use
  Company Number: US200606001001

PATIENT
  Age: 46 Year
  Sex: Male
  Weight: 92.5 kg

DRUGS (2)
  1. ZYPREXA [Suspect]
     Dosage: 20 MG
     Dates: start: 19990101, end: 20050101
  2. SEROQUEL /UNK/ (QUETIAPINE FUMARATE) [Concomitant]

REACTIONS (4)
  - DENTAL NECROSIS [None]
  - DIABETES MELLITUS [None]
  - GLUCOSE URINE PRESENT [None]
  - PANCREATITIS [None]
